FAERS Safety Report 17246444 (Version 1)
Quarter: 2020Q1

REPORT INFORMATION
  Report Type: Spontaneous
  Country: US (occurrence: US)
  Receive Date: 20200108
  Receipt Date: 20200108
  Transmission Date: 20200409
  Serious: Yes (Other)
  Sender: FDA-Public Use
  Company Number: NVSC2020US000813

PATIENT
  Age: 65 Year
  Sex: Female

DRUGS (1)
  1. IMATINIB. [Suspect]
     Active Substance: IMATINIB MESYLATE
     Indication: CHRONIC MYELOID LEUKAEMIA
     Route: 065

REACTIONS (6)
  - Fatigue [Unknown]
  - Dyspnoea [Unknown]
  - Hypoxia [Unknown]
  - Breath sounds abnormal [Unknown]
  - Cough [Unknown]
  - Rales [Unknown]
